FAERS Safety Report 7175307-8 (Version None)
Quarter: 2010Q4

REPORT INFORMATION
  Report Type: 
  Country: None (occurrence: None)
  Receive Date: 20101220
  Receipt Date: 20100305
  Transmission Date: 20110411
  Serious: No
  Sender: FDA-Public Use
  Company Number: US-AMGEN-TCS397843

PATIENT

DRUGS (3)
  1. ENBREL [Suspect]
     Indication: RHEUMATOID ARTHRITIS
     Dosage: 50 MG, QWK
     Route: 058
     Dates: start: 20000601
  2. METHOTREXATE [Concomitant]
     Dosage: 20 MG, QWK
     Route: 048
  3. GABAPENTIN [Concomitant]
     Dosage: UNK UNK, QD

REACTIONS (10)
  - ANGIOPATHY [None]
  - BIOPSY SKIN [None]
  - CONTUSION [None]
  - DRUG INTOLERANCE [None]
  - EXCORIATION [None]
  - NAUSEA [None]
  - PAIN [None]
  - PRODUCT USED FOR UNKNOWN INDICATION [None]
  - RHEUMATOID ARTHRITIS [None]
  - SKIN DISCOLOURATION [None]
